FAERS Safety Report 24287796 (Version 1)
Quarter: 2024Q3

REPORT INFORMATION
  Report Type: Spontaneous
  Country: US (occurrence: None)
  Receive Date: 20240904
  Receipt Date: 20240904
  Transmission Date: 20241017
  Serious: Yes (Hospitalization)
  Sender: Public
  Company Number: None

PATIENT
  Age: 58 Year
  Sex: Female

DRUGS (11)
  1. XOLAIR [Suspect]
     Active Substance: OMALIZUMAB
     Indication: Asthma
     Route: 058
     Dates: start: 20240719
  2. ACIDO LACTOB POW 1 BU/GM [Concomitant]
  3. AMITRIPTYLIN TAB 50MG [Concomitant]
  4. ASPIRIN LOW TAB 81MG EC [Concomitant]
  5. ATORVASTATIN [Concomitant]
     Active Substance: ATORVASTATIN
  6. CETIRIZINE HCL [Concomitant]
     Active Substance: CETIRIZINE HYDROCHLORIDE
  7. CRANBERRY TAB 400MG [Concomitant]
  8. CYANOCOBALAM INJ 1000MCG [Concomitant]
  9. D-2000 MAXIMUM STRENGTH [Concomitant]
  10. DULOXETINE CAP 60MG [Concomitant]
  11. EPIPEN 2-PAK INJ 0.3MG [Concomitant]

REACTIONS (1)
  - Hospitalisation [None]

NARRATIVE: CASE EVENT DATE: 20240831
